FAERS Safety Report 11785998 (Version 1)
Quarter: 2015Q4

REPORT INFORMATION
  Report Type: Report from Study
  Country: US (occurrence: US)
  Receive Date: 20151130
  Receipt Date: 20151130
  Transmission Date: 20160305
  Serious: Yes (Other)
  Sender: FDA-Public Use
  Company Number: US-BAYER-2015-420147

PATIENT
  Age: 61 Year
  Sex: Male
  Weight: 71.5 kg

DRUGS (9)
  1. TYLENOL [Concomitant]
     Active Substance: ACETAMINOPHEN
     Dosage: TAKE 2 PO
     Route: 048
  2. GABAPENTIN. [Concomitant]
     Active Substance: GABAPENTIN
     Dosage: TAKE 1 PO
     Route: 048
     Dates: start: 201505
  3. NEXAVAR [Suspect]
     Active Substance: SORAFENIB
     Indication: HEPATIC CANCER
     Dosage: 400 MG, BID
     Route: 048
     Dates: start: 20150901, end: 20150904
  4. OMEGA 3 [Concomitant]
     Active Substance: OMEGA-3 FATTY ACIDS
     Route: 048
  5. NEXAVAR [Suspect]
     Active Substance: SORAFENIB
     Indication: HEPATIC CANCER
     Dosage: 400 MG, BID
     Route: 048
     Dates: start: 20150824, end: 20150828
  6. SENNA [SENNA ALEXANDRINA] [Concomitant]
     Dosage: TAKE 1 PO QHS.
     Route: 048
  7. PANTOPRAZOLE SODIUM. [Concomitant]
     Active Substance: PANTOPRAZOLE SODIUM
     Dosage: TAKE 1 PO
     Route: 048
  8. PRENATAL PLUS IRON [Concomitant]
     Active Substance: .ALPHA.-TOCOPHEROL ACETATE, DL-\.BETA.-CAROTENE\ASCORBIC ACID\CALCIUM CARBONATE\CHOLECALCIFEROL\CUPRIC OXIDE\CYANOCOBALAMIN\FERROUS FUMARATE\FOLIC ACID\NIACINAMIDE\PYRIDOXINE HYDROCHLORIDE\RIBOFLAVIN\THIAMINE MONONITRATE\VITAMIN A ACETATE\ZINC OXIDE
     Dosage: TAKE 1 PO DAILY
     Route: 048
  9. NADOLOL. [Concomitant]
     Active Substance: NADOLOL
     Dosage: TAKE 0.5
     Route: 048
     Dates: start: 20150726

REACTIONS (24)
  - Palpitations [None]
  - Pain of skin [Recovering/Resolving]
  - Alopecia [None]
  - Headache [None]
  - Gait disturbance [None]
  - Nausea [Recovering/Resolving]
  - Blood pressure increased [Not Recovered/Not Resolved]
  - Rash papular [Not Recovered/Not Resolved]
  - Blood sodium decreased [None]
  - Rash erythematous [Recovering/Resolving]
  - Dizziness [None]
  - Weight decreased [Not Recovered/Not Resolved]
  - Headache [Recovering/Resolving]
  - Constipation [None]
  - Hepatomegaly [None]
  - Dysphonia [Recovering/Resolving]
  - Vision blurred [None]
  - Submaxillary gland enlargement [None]
  - Rash pruritic [Recovering/Resolving]
  - Thrombocytopenia [None]
  - Stomatitis [Recovering/Resolving]
  - Blood alkaline phosphatase increased [None]
  - Insomnia [Recovering/Resolving]
  - Decreased appetite [Recovering/Resolving]

NARRATIVE: CASE EVENT DATE: 20150830
